FAERS Safety Report 10305819 (Version 3)
Quarter: 2014Q3

REPORT INFORMATION
  Report Type: Spontaneous
  Country: US (occurrence: US)
  Receive Date: 20140715
  Receipt Date: 20140804
  Transmission Date: 20150326
  Serious: Yes (Other)
  Sender: FDA-Public Use
  Company Number: US-009507513-1407USA005090

PATIENT
  Age: 50 Year
  Sex: Female

DRUGS (7)
  1. LEXAPRO [Concomitant]
     Active Substance: ESCITALOPRAM OXALATE
     Indication: ANXIETY
     Dosage: 40 MG, QD
     Dates: start: 20131028
  2. STRATTERA [Concomitant]
     Active Substance: ATOMOXETINE HYDROCHLORIDE
     Indication: ATTENTION DEFICIT/HYPERACTIVITY DISORDER
     Dosage: 40 MG, QD
     Route: 048
     Dates: start: 20131028
  3. COPEGUS [Suspect]
     Active Substance: RIBAVIRIN
     Indication: HEPATITIS C
     Dosage: 1000 MG , 2 IN 1 D (BID), (600/400 MG IN DIVIDED DOSAGE), TOTAL DAILY DOSE 2000MG,
     Route: 048
     Dates: start: 20131124, end: 2013
  4. PEGASYS [Suspect]
     Active Substance: PEGINTERFERON ALFA-2A
     Indication: HEPATITIS C
     Dosage: 180 MICROGRAM, QW PROCLICK
     Route: 058
     Dates: start: 20131124, end: 20140513
  5. COPEGUS [Suspect]
     Active Substance: RIBAVIRIN
     Dosage: TOTAL DAILY DOSE: 600 (UNITS NOT PROVIDED)
     Route: 048
     Dates: start: 2013, end: 20140513
  6. ALBUTEROL. [Concomitant]
     Active Substance: ALBUTEROL
     Indication: DYSPNOEA
     Dosage: 90 MICROGRAM, PRN
     Route: 055
     Dates: start: 20131028
  7. VICTRELIS [Suspect]
     Active Substance: BOCEPREVIR
     Indication: HEPATITIS C
     Dosage: 800 MG, TID
     Route: 048
     Dates: start: 201311, end: 20140513

REACTIONS (5)
  - Leukopenia [Recovered/Resolved]
  - Alopecia [Recovered/Resolved]
  - White blood cell disorder [Unknown]
  - Thrombocytopenia [Unknown]
  - Anaemia [Recovered/Resolved]

NARRATIVE: CASE EVENT DATE: 2013
